FAERS Safety Report 4356753-4 (Version None)
Quarter: 2004Q2

REPORT INFORMATION
  Report Type: 
  Country: None (occurrence: None)
  Receive Date: 20040507
  Receipt Date: 20040416
  Transmission Date: 20050107
  Serious: Yes (Hospitalization, Other)
  Sender: FDA-Public Use
  Company Number: US_0402100510

PATIENT
  Age: 63 Year
  Sex: Male

DRUGS (2)
  1. PERMAX [Suspect]
     Indication: PARKINSON'S DISEASE
     Dosage: 1.5 MG/3 DAY
     Dates: start: 19970101
  2. SINEMET [Concomitant]

REACTIONS (10)
  - CARDIAC FAILURE [None]
  - CARDIAC VALVE DISEASE [None]
  - CARDIOMEGALY [None]
  - CHEST PAIN [None]
  - DEPRESSION [None]
  - DYSPNOEA [None]
  - FALL [None]
  - MITRAL VALVE DISEASE [None]
  - OEDEMA PERIPHERAL [None]
  - SKIN DISCOLOURATION [None]
